FAERS Safety Report 7746225-9 (Version None)
Quarter: 2011Q3

REPORT INFORMATION
  Report Type: 
  Country: None (occurrence: None)
  Receive Date: 20110913
  Receipt Date: 20110905
  Transmission Date: 20111222
  Serious: Yes (Life-Threatening, Other)
  Sender: FDA-Public Use
  Company Number: JP-JNJFOC-20090801942

PATIENT
  Sex: Female
  Weight: 53 kg

DRUGS (2)
  1. DOXORUBICIN HCL [Suspect]
     Indication: OVARIAN CANCER RECURRENT
     Dosage: COURSE 2
     Route: 042
     Dates: start: 20090707, end: 20090707
  2. DOXORUBICIN HCL [Suspect]
     Dosage: COURSE 1
     Route: 042
     Dates: start: 20090609, end: 20090609

REACTIONS (1)
  - INTERSTITIAL LUNG DISEASE [None]
